FAERS Safety Report 10181578 (Version 3)
Quarter: 2014Q4

REPORT INFORMATION
  Report Type: Spontaneous
  Country: BR (occurrence: BR)
  Receive Date: 20140519
  Receipt Date: 20141009
  Transmission Date: 20150528
  Serious: Yes (Other)
  Sender: FDA-Public Use
  Company Number: BR-GLAXOSMITHKLINE-B0993531A

PATIENT
  Age: 80 Year
  Sex: Female
  Weight: 55 kg

DRUGS (13)
  1. LOSARTAN POTASSIUM. [Concomitant]
     Active Substance: LOSARTAN POTASSIUM
     Indication: HYPERTENSION
     Dosage: IN MORNING AND AT NIGHT
     Route: 048
     Dates: start: 20120513
  2. NASONEX [Concomitant]
     Active Substance: MOMETASONE FUROATE
     Indication: NASAL CONGESTION
     Dosage: USUALLY ONCE PER DAY
     Route: 045
     Dates: start: 2011
  3. SIMVASTATIN. [Concomitant]
     Active Substance: SIMVASTATIN
     Indication: BLOOD CHOLESTEROL
     Route: 048
  4. RYTHMOL [Suspect]
     Active Substance: PROPAFENONE HYDROCHLORIDE
     Indication: HYPERTENSION
  5. SODIUM CHLORIDE. [Concomitant]
     Active Substance: SODIUM CHLORIDE
     Indication: FLUSHING
     Dosage: TWO TIMES (FREQUENCY UNSPECIFIED)
     Route: 045
  6. SERTRALINE [Concomitant]
     Active Substance: SERTRALINE HYDROCHLORIDE
     Indication: PRODUCT USED FOR UNKNOWN INDICATION
     Route: 048
     Dates: start: 2006
  7. RYTHMOL [Suspect]
     Active Substance: PROPAFENONE HYDROCHLORIDE
     Indication: ARRHYTHMIA
     Dosage: IN THE MORNING AND AT NIGHT
     Route: 048
     Dates: start: 20120513
  8. DRAMIN B6 [Concomitant]
     Indication: LABYRINTHITIS
     Dosage: USUALLY 1 TABLET DAILY, 2 TABLETS DAILY WHEN DIZZINESS IS INTENSE.STRENGTH: 50MG + 10MG
     Route: 048
  9. UNKNOWN MEDICATION [Concomitant]
     Active Substance: UNSPECIFIED INGREDIENT
     Indication: SEDATION
  10. UNKNOWN MEDICATION [Concomitant]
     Active Substance: UNSPECIFIED INGREDIENT
     Indication: VOCAL CORD DISORDER
  11. OMEPRAZOLE. [Concomitant]
     Active Substance: OMEPRAZOLE
     Indication: HIATUS HERNIA
     Dosage: AFTER FASTING; 20 MINUTES BEFORE EATING
     Route: 048
  12. OMEPRAZOLE. [Concomitant]
     Active Substance: OMEPRAZOLE
     Indication: GASTRITIS
  13. DRAMIN B6 [Concomitant]
     Indication: DIZZINESS

REACTIONS (4)
  - Arrhythmia [Recovering/Resolving]
  - Cough [Recovered/Resolved]
  - Dysphonia [Recovered/Resolved]
  - Influenza [Recovered/Resolved]

NARRATIVE: CASE EVENT DATE: 20120513
